FAERS Safety Report 5854110-2 (Version None)
Quarter: 2008Q3

REPORT INFORMATION
  Report Type: 
  Country: None (occurrence: None)
  Receive Date: 20080822
  Receipt Date: 20080818
  Transmission Date: 20090109
  Serious: Yes (Hospitalization)
  Sender: FDA-Public Use
  Company Number: JP-EISAI MEDICAL RESEARCH-E2020-03100-SPO-JP

PATIENT
  Age: 84 Year
  Sex: Female
  Weight: 34.5 kg

DRUGS (11)
  1. ARICEPT [Suspect]
     Indication: DEMENTIA ALZHEIMER'S TYPE
     Route: 048
     Dates: start: 20080410, end: 20080423
  2. ARICEPT [Suspect]
     Route: 048
     Dates: start: 20080424, end: 20080609
  3. BASEN [Concomitant]
     Route: 048
     Dates: start: 20080410
  4. AMARYL [Concomitant]
     Route: 048
     Dates: start: 20080410
  5. ACTOS [Concomitant]
     Route: 048
     Dates: start: 20080410
  6. MELBIN [Concomitant]
     Route: 048
     Dates: start: 20080410
  7. PRAVASTATIN [Concomitant]
     Route: 048
     Dates: start: 20080410
  8. ISCOTIN [Concomitant]
     Route: 048
     Dates: start: 20080410
  9. ETHAMBUTOL HCL [Concomitant]
     Route: 048
     Dates: start: 20080410, end: 20080601
  10. RIFAMPICIN [Concomitant]
     Route: 048
     Dates: start: 20080410
  11. DIAZEPAM [Concomitant]
     Route: 048

REACTIONS (2)
  - C-REACTIVE PROTEIN INCREASED [None]
  - PYREXIA [None]
